FAERS Safety Report 13332369 (Version 1)
Quarter: 2017Q1

REPORT INFORMATION
  Report Type: Spontaneous
  Country: US (occurrence: US)
  Receive Date: 20170313
  Receipt Date: 20170313
  Transmission Date: 20170428
  Serious: No
  Sender: FDA-Public Use
  Company Number: None

PATIENT
  Sex: Male
  Weight: 86.71 kg

DRUGS (2)
  1. LONSURF [Suspect]
     Active Substance: TIPIRACIL HYDROCHLORIDE\TRIFLURIDINE
     Indication: COLON CANCER
     Dosage: 15MG (4TAB) BID ORAL
     Route: 048
     Dates: start: 20161223
  2. AKYNZEO [Suspect]
     Active Substance: NETUPITANT\PALONOSETRON HYDROCHLORIDE
     Dosage: 300-0.5 MG DAILY-ONE DOSE ORAL
     Route: 048
     Dates: start: 20170310

REACTIONS (2)
  - Haemoglobin decreased [None]
  - White blood cell count decreased [None]
